FAERS Safety Report 9503408 (Version 1)
Quarter: 2013Q3

REPORT INFORMATION
  Report Type: Spontaneous
  Country: GR (occurrence: GR)
  Receive Date: 20130906
  Receipt Date: 20130906
  Transmission Date: 20140515
  Serious: Yes (Hospitalization)
  Sender: FDA-Public Use
  Company Number: GR-SANOFI-AVENTIS-2013SA087741

PATIENT
  Age: 52 Year
  Sex: Female

DRUGS (3)
  1. RIFAMPICIN [Suspect]
     Indication: TUBERCULOSIS
     Route: 065
  2. ISONIAZID [Concomitant]
     Indication: TUBERCULOSIS
  3. ETHAMBUTOL [Concomitant]
     Indication: TUBERCULOSIS

REACTIONS (9)
  - Fanconi syndrome acquired [Unknown]
  - Hypokalaemia [Unknown]
  - Hypouricaemia [Unknown]
  - Renal glycosuria [Unknown]
  - Proteinuria [Unknown]
  - Blood pH decreased [Unknown]
  - Blood bicarbonate decreased [Unknown]
  - Blood chloride increased [Unknown]
  - Muscular weakness [Unknown]
